FAERS Safety Report 26178225 (Version 1)
Quarter: 2025Q4

REPORT INFORMATION
  Report Type: Spontaneous
  Country: JP (occurrence: JP)
  Receive Date: 20251219
  Receipt Date: 20251219
  Transmission Date: 20260117
  Serious: Yes (Life-Threatening, Hospitalization, Other)
  Sender: ASTELLAS
  Company Number: JP-ASTELLAS-2025-AER-070315

PATIENT
  Age: 4 Year
  Sex: Male

DRUGS (5)
  1. TACROLIMUS [Suspect]
     Active Substance: TACROLIMUS
     Indication: Dermatomyositis
     Route: 065
  2. TACROLIMUS [Suspect]
     Active Substance: TACROLIMUS
     Indication: Interstitial lung disease
  3. VORICONAZOLE [Concomitant]
     Active Substance: VORICONAZOLE
     Indication: Bronchopulmonary aspergillosis
     Route: 065
  4. VORICONAZOLE [Concomitant]
     Active Substance: VORICONAZOLE
     Indication: Lung abscess
  5. VORICONAZOLE [Concomitant]
     Active Substance: VORICONAZOLE
     Indication: Brain abscess

REACTIONS (7)
  - Status epilepticus [Unknown]
  - Toxic encephalopathy [Unknown]
  - Pneumothorax [Unknown]
  - Lung abscess [Unknown]
  - Brain abscess [Unknown]
  - Bronchopulmonary aspergillosis [Unknown]
  - Product prescribing issue [Unknown]
